FAERS Safety Report 6153001-X (Version None)
Quarter: 2009Q2

REPORT INFORMATION
  Report Type: 
  Country: None (occurrence: None)
  Receive Date: 20090413
  Receipt Date: 20090406
  Transmission Date: 20091009
  Serious: Yes (Other)
  Sender: FDA-Public Use
  Company Number: A0777106A

PATIENT
  Age: 65 Year
  Sex: Female

DRUGS (4)
  1. MALARONE [Suspect]
     Indication: MALARIA PROPHYLAXIS
     Dates: start: 20090101
  2. SYNTHROID [Concomitant]
  3. CRESTOR [Concomitant]
  4. PREMARIN [Concomitant]

REACTIONS (4)
  - GAMMOPATHY [None]
  - HAEMOGLOBIN DECREASED [None]
  - HAEMOLYTIC ANAEMIA [None]
  - HYPERGAMMAGLOBULINAEMIA BENIGN MONOCLONAL [None]
